FAERS Safety Report 13660329 (Version 1)
Quarter: 2017Q2

REPORT INFORMATION
  Report Type: Spontaneous
  Country: GB (occurrence: GB)
  Receive Date: 20170616
  Receipt Date: 20170616
  Transmission Date: 20170830
  Serious: Yes (Hospitalization, Other)
  Sender: FDA-Public Use
  Company Number: GB-PFIZER INC-2017263776

PATIENT

DRUGS (3)
  1. RAMIPRIL. [Suspect]
     Active Substance: RAMIPRIL
     Indication: BLOOD PRESSURE ABNORMAL
     Dosage: 1.25 MG, DAILY
     Route: 048
  2. RAMIPRIL. [Suspect]
     Active Substance: RAMIPRIL
     Indication: CARDIOVASCULAR EVENT PROPHYLAXIS
     Dosage: UNK
     Route: 048
  3. INSULIN PORCINE [Concomitant]
     Active Substance: INSULIN PORK\INSULIN PURIFIED PORK
     Dosage: UNK
     Dates: start: 1979

REACTIONS (15)
  - Nasal congestion [Unknown]
  - Blood zinc decreased [Unknown]
  - Blood magnesium decreased [Unknown]
  - Blood potassium decreased [Unknown]
  - Fall [Unknown]
  - Pain in extremity [Unknown]
  - Electrolyte imbalance [Unknown]
  - Blood calcium increased [Unknown]
  - Blood sodium decreased [Unknown]
  - Auditory disorder [Unknown]
  - Cortisol increased [Unknown]
  - Balance disorder [Unknown]
  - Lower limb fracture [Unknown]
  - Muscle spasms [Unknown]
  - Myalgia [Unknown]
